FAERS Safety Report 18749703 (Version 2)
Quarter: 2021Q1

REPORT INFORMATION
  Report Type: Spontaneous
  Country: FR (occurrence: FR)
  Receive Date: 20210117
  Receipt Date: 20210211
  Transmission Date: 20210419
  Serious: Yes (Hospitalization)
  Sender: FDA-Public Use
  Company Number: FR-TEVA-2021-FR-1868503

PATIENT
  Age: 32 Year
  Sex: Male
  Weight: 66 kg

DRUGS (4)
  1. PREDNISONE. [Suspect]
     Active Substance: PREDNISONE
     Indication: COLITIS
     Dosage: 40 MG
     Route: 048
     Dates: start: 2014
  2. PENTASA 2 G, GRANULES EN SACHET?DOSE [Concomitant]
     Indication: COLITIS
     Dosage: 2 G
     Route: 048
     Dates: start: 2014
  3. HUMIRA [Suspect]
     Active Substance: ADALIMUMAB
     Indication: COLITIS
     Route: 058
     Dates: start: 20200813
  4. IMUREL 50 MG, COMPRIME PELLICULE [Suspect]
     Active Substance: AZATHIOPRINE
     Indication: COLITIS
     Dosage: 200 MG
     Route: 048
     Dates: start: 202007

REACTIONS (1)
  - Pulmonary tuberculosis [Not Recovered/Not Resolved]

NARRATIVE: CASE EVENT DATE: 20201211
